FAERS Safety Report 17825913 (Version 1)
Quarter: 2020Q2

REPORT INFORMATION
  Report Type: Report from Study
  Country: GB (occurrence: GB)
  Receive Date: 20200526
  Receipt Date: 20200526
  Transmission Date: 20200714
  Serious: Yes (Hospitalization)
  Sender: FDA-Public Use
  Company Number: GB-SAMSUNG BIOEPIS-SB-2020-13072

PATIENT
  Sex: Female

DRUGS (1)
  1. IMRALDI [Suspect]
     Active Substance: ADALIMUMAB
     Indication: COLITIS
     Route: 058

REACTIONS (4)
  - Exposure to communicable disease [Unknown]
  - Product use in unapproved indication [Unknown]
  - Surgery [Unknown]
  - COVID-19 [Unknown]
